FAERS Safety Report 11191386 (Version 3)
Quarter: 2015Q3

REPORT INFORMATION
  Report Type: Spontaneous
  Country: GB (occurrence: GB)
  Receive Date: 20150616
  Receipt Date: 20150702
  Transmission Date: 20151125
  Serious: Yes (Other)
  Sender: FDA-Public Use
  Company Number: PHFR2015GB004168

PATIENT
  Sex: Male

DRUGS (2)
  1. CLOZARIL [Suspect]
     Active Substance: CLOZAPINE
     Dosage: UNK
     Route: 048
     Dates: start: 20150602
  2. CLOZARIL [Suspect]
     Active Substance: CLOZAPINE
     Indication: SCHIZOPHRENIA
     Route: 048
     Dates: start: 20150210

REACTIONS (6)
  - Biliary tract infection [Unknown]
  - Atypical pneumonia [Unknown]
  - Vomiting [Unknown]
  - Schizophrenia [Unknown]
  - Pyrexia [Unknown]
  - Liver function test abnormal [Recovered/Resolved]
